FAERS Safety Report 8853241 (Version 2)
Quarter: 2012Q4

REPORT INFORMATION
  Report Type: 
  Country: US (occurrence: US)
  Receive Date: 20121022
  Receipt Date: 20121226
  Transmission Date: 20130627
  Serious: Yes (Other)
  Sender: FDA-Public Use
  Company Number: CHPA2012US018404

PATIENT
  Age: 72 Year
  Sex: Male

DRUGS (2)
  1. VOLTAREN GEL [Suspect]
     Indication: BACK PAIN
     Dosage: Pea size amount, every 2-3 weeks
     Route: 061
  2. HERPES ZOSTER REMEDY [Suspect]
     Indication: IMMUNISATION
     Dosage: Unk, ONCE/SINGLE

REACTIONS (9)
  - Herpes zoster [Recovered/Resolved]
  - VIIth nerve paralysis [Recovered/Resolved]
  - Mass [Recovered/Resolved]
  - Milia [Recovered/Resolved]
  - Application site pain [Not Recovered/Not Resolved]
  - Off label use [Unknown]
  - Therapeutic response decreased [Unknown]
  - Wrong technique in drug usage process [Unknown]
  - Drug administered at inappropriate site [Unknown]
